FAERS Safety Report 12210056 (Version 1)
Quarter: 2016Q1

REPORT INFORMATION
  Report Type: Spontaneous
  Country: US (occurrence: None)
  Receive Date: 20160323
  Receipt Date: 20160323
  Transmission Date: 20160526
  Serious: No
  Sender: FDA-Public Use
  Company Number: None

PATIENT
  Sex: Male

DRUGS (2)
  1. SOVALDI [Suspect]
     Active Substance: SOFOSBUVIR
     Route: 048
     Dates: start: 20160104
  2. DAKLINZA [Suspect]
     Active Substance: DACLATASVIR
     Route: 048
     Dates: start: 20160104

REACTIONS (1)
  - Hyperthermia malignant [None]
